FAERS Safety Report 9338930 (Version 2)
Quarter: 2013Q2

REPORT INFORMATION
  Report Type: Spontaneous
  Country: ZA (occurrence: ZA)
  Receive Date: 20130610
  Receipt Date: 20130612
  Transmission Date: 20140414
  Serious: Yes (Hospitalization)
  Sender: FDA-Public Use
  Company Number: ZA-PFIZER INC-2013173409

PATIENT
  Age: 35 Year
  Sex: Female

DRUGS (1)
  1. ADVIL CS [Suspect]
     Indication: NASOPHARYNGITIS
     Dosage: 2 DF, SINGLE
     Dates: start: 20130605, end: 20130605

REACTIONS (3)
  - Hypersensitivity [Unknown]
  - Dyspnoea [Unknown]
  - Urticaria [Unknown]
